FAERS Safety Report 8088059-4 (Version None)
Quarter: 2012Q1

REPORT INFORMATION
  Report Type: 
  Country: None (occurrence: None)
  Receive Date: 20120128
  Receipt Date: 20110528
  Transmission Date: 20120608
  Serious: No
  Sender: FDA-Public Use
  Company Number: US-ABBOTT-11P-163-0729114-00

PATIENT
  Age: 31 Year
  Sex: Female

DRUGS (8)
  1. CALCIUM [Concomitant]
     Indication: MINERAL SUPPLEMENTATION
  2. LOVAZA [Concomitant]
     Indication: SUPPLEMENTATION THERAPY
  3. ADDERALL 5 [Concomitant]
     Indication: ATTENTION DEFICIT/HYPERACTIVITY DISORDER
  4. VITAMIN B-12 [Concomitant]
     Indication: ILEOCOLECTOMY
  5. CLARITIN [Concomitant]
     Indication: HYPERSENSITIVITY
  6. HUMIRA [Suspect]
     Indication: CROHN'S DISEASE
     Dates: start: 20110201
  7. VITAMIN D [Concomitant]
     Indication: PRODUCT USED FOR UNKNOWN INDICATION
  8. MULTI-VITAMIN [Concomitant]
     Indication: PRODUCT USED FOR UNKNOWN INDICATION

REACTIONS (5)
  - INJECTION SITE HAEMATOMA [None]
  - INJECTION SITE SWELLING [None]
  - INJECTION SITE REACTION [None]
  - INJECTION SITE PRURITUS [None]
  - INJECTION SITE ERYTHEMA [None]
